FAERS Safety Report 25731544 (Version 1)
Quarter: 2025Q3

REPORT INFORMATION
  Report Type: Spontaneous
  Country: EU (occurrence: EU)
  Receive Date: 20250827
  Receipt Date: 20250827
  Transmission Date: 20251021
  Serious: Yes (Hospitalization)
  Sender: PFIZER
  Company Number: None

PATIENT
  Age: 3 Day
  Sex: Male
  Weight: 3.2 kg

DRUGS (5)
  1. PROSTIN [Suspect]
     Active Substance: ALPROSTADIL
     Indication: Transposition of the great vessels
     Route: 042
     Dates: start: 20250808
  2. PROSTIN [Suspect]
     Active Substance: ALPROSTADIL
     Route: 042
     Dates: start: 202508
  3. PROSTIN [Suspect]
     Active Substance: ALPROSTADIL
     Route: 042
     Dates: start: 202508
  4. PROSTIN [Suspect]
     Active Substance: ALPROSTADIL
     Route: 042
     Dates: start: 202508
  5. PROSTIN [Suspect]
     Active Substance: ALPROSTADIL
     Route: 042
     Dates: start: 202508

REACTIONS (1)
  - Necrotising enterocolitis neonatal [Recovered/Resolved]

NARRATIVE: CASE EVENT DATE: 20250811
